FAERS Safety Report 6614513-5 (Version None)
Quarter: 2010Q1

REPORT INFORMATION
  Report Type: 
  Country: None (occurrence: None)
  Receive Date: 20100304
  Receipt Date: 20100301
  Transmission Date: 20100710
  Serious: Yes (Hospitalization, Disabling)
  Sender: FDA-Public Use
  Company Number: US-MERCK-0912USA02709

PATIENT
  Age: 32 Month
  Sex: Male
  Weight: 18 kg

DRUGS (3)
  1. SINGULAIR [Suspect]
     Indication: ASTHMA
     Route: 048
     Dates: start: 20091204, end: 20091211
  2. SINGULAIR [Suspect]
     Indication: RHINITIS ALLERGIC
     Route: 048
     Dates: start: 20091204, end: 20091211
  3. PULMICORT [Concomitant]
     Indication: BRONCHIAL HYPERREACTIVITY
     Route: 055
     Dates: start: 20091201

REACTIONS (6)
  - COUGH [None]
  - PYREXIA [None]
  - SOMNOLENCE [None]
  - TIC [None]
  - UNRESPONSIVE TO STIMULI [None]
  - VOMITING [None]
